FAERS Safety Report 7537952-7 (Version None)
Quarter: 2011Q2

REPORT INFORMATION
  Report Type: 
  Country: None (occurrence: None)
  Receive Date: 20110609
  Receipt Date: 20110603
  Transmission Date: 20111010
  Serious: Yes (Hospitalization)
  Sender: FDA-Public Use
  Company Number: GB-PFIZER INC-2009202887

PATIENT
  Age: 66 Year
  Sex: Male

DRUGS (6)
  1. LANSOPRAZOLE [Concomitant]
  2. VITAMIN B NOS [Concomitant]
  3. OMEPRAZOLE [Concomitant]
  4. SUNITINIB MALATE [Suspect]
     Indication: METASTATIC RENAL CELL CARCINOMA
     Dosage: 50 MG, 1X/DAY
     Route: 048
     Dates: start: 20090205
  5. PENICILLIN NOS [Concomitant]
     Dosage: UNK
  6. SALBUTEROL ^MEDIDATA^ [Concomitant]

REACTIONS (3)
  - OESOPHAGITIS ULCERATIVE [None]
  - HAEMATEMESIS [None]
  - HYPOTENSION [None]
